FAERS Safety Report 17830412 (Version 2)
Quarter: 2020Q3

REPORT INFORMATION
  Report Type: Report from Study
  Country: PL (occurrence: PL)
  Receive Date: 20200527
  Receipt Date: 20200813
  Transmission Date: 20201104
  Serious: Yes (Hospitalization)
  Sender: FDA-Public Use
  Company Number: PL-CELGENEUS-POL-20191108518

PATIENT
  Age: 6 Decade
  Sex: Female
  Weight: 64.5 kg

DRUGS (6)
  1. OZANIMOD. [Suspect]
     Active Substance: OZANIMOD
     Indication: MULTIPLE SCLEROSIS
     Dosage: 1 MILLIGRAM
     Route: 048
     Dates: start: 20161017, end: 20191120
  2. BACLOFEN. [Concomitant]
     Active Substance: BACLOFEN
     Indication: MUSCLE SPASTICITY
     Dosage: 50 MILLIGRAM
     Route: 048
     Dates: start: 20190616
  3. UROTRIM [Concomitant]
     Active Substance: TRIMETHOPRIM
     Indication: NEUROGENIC BLADDER
     Route: 048
     Dates: start: 20190625
  4. PRESTARIUM [Concomitant]
     Active Substance: PERINDOPRIL
     Indication: HYPERTENSION
     Dosage: 5 MILLIGRAM
     Route: 048
     Dates: start: 20190129
  5. POLTRAM COMBO [Concomitant]
     Active Substance: ACETAMINOPHEN\TRAMADOL HYDROCHLORIDE
     Indication: BURSITIS
     Route: 048
     Dates: start: 20180115
  6. ROSWERA [Concomitant]
     Active Substance: ROSUVASTATIN
     Indication: HYPERCHOLESTEROLAEMIA
     Dosage: 10 MILLIGRAM
     Route: 048
     Dates: start: 20171123

REACTIONS (1)
  - Myxoid liposarcoma [Not Recovered/Not Resolved]

NARRATIVE: CASE EVENT DATE: 20190909
